FAERS Safety Report 12055831 (Version 2)
Quarter: 2016Q1

REPORT INFORMATION
  Report Type: Report from Study
  Country: IL (occurrence: IL)
  Receive Date: 20160209
  Receipt Date: 20160216
  Transmission Date: 20160526
  Serious: Yes (Hospitalization, Other)
  Sender: FDA-Public Use
  Company Number: PHHY2015IL080968

PATIENT
  Age: 25 Year
  Sex: Female
  Weight: 90 kg

DRUGS (1)
  1. GILENYA [Suspect]
     Active Substance: FINGOLIMOD HYDROCHLORIDE
     Indication: EXPOSURE VIA FATHER
     Dosage: (FETAL DRUG EXPOSURE VIA FATHER, 0.5 MG, QD)
     Route: 050

REACTIONS (2)
  - Exposure via father [Unknown]
  - Pre-eclampsia [Recovered/Resolved]
